FAERS Safety Report 5306513-2 (Version None)
Quarter: 2007Q2

REPORT INFORMATION
  Report Type: 
  Country: None (occurrence: None)
  Receive Date: 20070418
  Receipt Date: 20070406
  Transmission Date: 20071010
  Serious: Yes (Hospitalization)
  Sender: FDA-Public Use
  Company Number: 2006-02501

PATIENT
  Age: 54 Year
  Sex: 0

DRUGS (7)
  1. VELCADE [Suspect]
     Indication: MULTIPLE MYELOMA
  2. MELPHALAN(MELPHALAN) VIAL [Suspect]
     Indication: MULTIPLE MYELOMA
  3. LORAZEPAM [Concomitant]
  4. CILASTATIN SODIUM W/IMIPENEM (IMIPENEM, CILASTATIN SODIUM) [Concomitant]
  5. MORPHINE [Concomitant]
  6. CLEMASTINE (CLEMASTINE) [Concomitant]
  7. ITRACONAZOLE [Concomitant]

REACTIONS (3)
  - HYPOTENSION [None]
  - HYPOVOLAEMIA [None]
  - RENAL FAILURE [None]
